FAERS Safety Report 5931602-9 (Version None)
Quarter: 2008Q4

REPORT INFORMATION
  Report Type: 
  Country: None (occurrence: None)
  Receive Date: 20081027
  Receipt Date: 20081014
  Transmission Date: 20090506
  Serious: No
  Sender: FDA-Public Use
  Company Number: GB-ELI_LILLY_AND_COMPANY-GB200807003691

PATIENT
  Sex: Male
  Weight: 160 kg

DRUGS (1)
  1. CIALIS [Suspect]
     Indication: ERECTILE DYSFUNCTION
     Dosage: 20 MG, UNKNOWN
     Route: 048
     Dates: start: 20080314

REACTIONS (3)
  - INTENTIONAL OVERDOSE [None]
  - MYODESOPSIA [None]
  - VISUAL IMPAIRMENT [None]
